FAERS Safety Report 6757611-8 (Version None)
Quarter: 2010Q2

REPORT INFORMATION
  Report Type: 
  Country: None (occurrence: None)
  Receive Date: 20100607
  Receipt Date: 20100528
  Transmission Date: 20101027
  Serious: Yes (Hospitalization)
  Sender: FDA-Public Use
  Company Number: IT-JNJFOC-20100510500

PATIENT
  Sex: Female

DRUGS (1)
  1. LEVOFLOXACIN [Suspect]
     Indication: DRUG USE FOR UNKNOWN INDICATION
     Route: 065

REACTIONS (6)
  - CHILLS [None]
  - CONJUNCTIVAL HYPERAEMIA [None]
  - COUGH [None]
  - LIP OEDEMA [None]
  - MALAISE [None]
  - OROPHARYNGEAL PAIN [None]
